FAERS Safety Report 10094216 (Version 1)
Quarter: 2014Q2

REPORT INFORMATION
  Report Type: Spontaneous
  Country: US (occurrence: None)
  Receive Date: 20140418
  Receipt Date: 20140418
  Transmission Date: 20141212
  Serious: Yes (Hospitalization)
  Sender: FDA-Public Use
  Company Number: UTC-047212

PATIENT
  Age: 71 Year
  Sex: Male
  Weight: 90.71 kg

DRUGS (2)
  1. REMODULIN [Suspect]
     Indication: PULMONARY ARTERIAL HYPERTENSION
     Dosage: (0.002 UG/KG, 1 IN 1 MIN)
     Route: 058
     Dates: start: 20140331
  2. VENTAVIS (ILOPROST) [Concomitant]

REACTIONS (1)
  - Oxygen saturation decreased [None]
